FAERS Safety Report 20189680 (Version 1)
Quarter: 2021Q4

REPORT INFORMATION
  Report Type: Other
  Country: US (occurrence: US)
  Receive Date: 20211215
  Receipt Date: 20211215
  Transmission Date: 20220303
  Serious: Yes (Hospitalization, Other)
  Sender: FDA-Public Use
  Company Number: US-HLS-202105678

PATIENT
  Age: 71 Year
  Sex: Male

DRUGS (2)
  1. CLOZAPINE [Suspect]
     Active Substance: CLOZAPINE
     Dosage: 25MG AT NIGHT, THEN INCREASED TO 50MG AT NIGHT, THEN INCREASED TO 75 MG AT NIGHT.
     Route: 048
  2. FLUPHENAZINE DECANOATE [Concomitant]
     Active Substance: FLUPHENAZINE DECANOATE
     Indication: Product used for unknown indication
     Dosage: 50MG INTRAMUSCULAR EVERY 3 WEEKS, THEN DECREASED TO 37.5MG.
     Route: 030

REACTIONS (4)
  - COVID-19 [Recovered/Resolved]
  - Delusion [Unknown]
  - Oxygen saturation decreased [Recovered/Resolved]
  - Anal incontinence [Unknown]
